FAERS Safety Report 7680481-0 (Version None)
Quarter: 2011Q3

REPORT INFORMATION
  Report Type: 
  Country: None (occurrence: None)
  Receive Date: 20110812
  Receipt Date: 20110801
  Transmission Date: 20111222
  Serious: Yes (Hospitalization)
  Sender: FDA-Public Use
  Company Number: US-JNJFOC-20091200637

PATIENT
  Sex: Male
  Weight: 81.5 kg

DRUGS (2)
  1. REMICADE [Suspect]
     Indication: COLITIS ULCERATIVE
     Route: 042
     Dates: start: 20060810
  2. REMICADE [Suspect]
     Dosage: MAINTENANCE THERAPY; TOTAL 22 DOSES
     Route: 042
     Dates: start: 20091105

REACTIONS (1)
  - ABDOMINAL PAIN [None]
